FAERS Safety Report 25621884 (Version 3)
Quarter: 2025Q4

REPORT INFORMATION
  Report Type: Report from Study
  Country: KR (occurrence: KR)
  Receive Date: 20250730
  Receipt Date: 20251226
  Transmission Date: 20260118
  Serious: Yes (Other)
  Sender: SUNOVION
  Company Number: KR-BIAL-BIAL-16800

PATIENT
  Sex: Female
  Weight: 55 kg

DRUGS (2)
  1. ESLICARBAZEPINE ACETATE [Suspect]
     Active Substance: ESLICARBAZEPINE ACETATE
     Indication: Epilepsy
     Dosage: 400 MILLIGRAM, QD
     Route: 048
     Dates: start: 20240202, end: 20240228
  2. ESLICARBAZEPINE ACETATE [Suspect]
     Active Substance: ESLICARBAZEPINE ACETATE
     Dosage: 600 MILLIGRAM, QD
     Route: 048
     Dates: start: 20240229, end: 20240328

REACTIONS (4)
  - Hallucination, auditory [Recovered/Resolved]
  - Obsessive thoughts [Recovered/Resolved]
  - Drug titration error [Recovered/Resolved]
  - Underdose [Recovered/Resolved]

NARRATIVE: CASE EVENT DATE: 20040201
